FAERS Safety Report 6074542-X (Version None)
Quarter: 2009Q1

REPORT INFORMATION
  Report Type: 
  Country: None (occurrence: None)
  Receive Date: 20090206
  Receipt Date: 20090202
  Transmission Date: 20090719
  Serious: Yes (Hospitalization)
  Sender: FDA-Public Use
  Company Number: CIP09000241

PATIENT
  Age: 70 Year
  Sex: Female

DRUGS (1)
  1. ACTONEL [Suspect]
     Dosage: ORAL
     Route: 048

REACTIONS (2)
  - ARRHYTHMIA [None]
  - HEART RATE INCREASED [None]
